FAERS Safety Report 15533221 (Version 3)
Quarter: 2020Q1

REPORT INFORMATION
  Report Type: Spontaneous
  Country: US (occurrence: US)
  Receive Date: 20181019
  Receipt Date: 20200213
  Transmission Date: 20200409
  Serious: Yes (Other)
  Sender: FDA-Public Use
  Company Number: US-SA-2017SA266779

PATIENT
  Age: 51 Year
  Sex: Female
  Weight: 57 kg

DRUGS (16)
  1. CYTOXAN [Concomitant]
     Active Substance: CYCLOPHOSPHAMIDE
  2. ARIMIDEX [Concomitant]
     Active Substance: ANASTROZOLE
  3. NEOSAR [Concomitant]
     Active Substance: CYCLOPHOSPHAMIDE
     Indication: BREAST CANCER FEMALE
     Route: 065
  4. COMPAZINE [Concomitant]
     Active Substance: PROCHLORPERAZINE MALEATE
     Route: 065
  5. NEULASTA [Concomitant]
     Active Substance: PEGFILGRASTIM
     Route: 065
  6. EMEND [Concomitant]
     Active Substance: APREPITANT
     Route: 065
  7. EFFEXOR [Concomitant]
     Active Substance: VENLAFAXINE HYDROCHLORIDE
  8. ADRIAMYCIN [Concomitant]
     Active Substance: DOXORUBICIN HYDROCHLORIDE
     Indication: BREAST CANCER FEMALE
     Route: 065
  9. CIPROFLOXACIN. [Concomitant]
     Active Substance: CIPROFLOXACIN
  10. NEUPOGEN [Concomitant]
     Active Substance: FILGRASTIM
  11. ANZEMET [Concomitant]
     Active Substance: DOLASETRON MESYLATE
  12. TAXOTERE [Suspect]
     Active Substance: DOCETAXEL
     Indication: BREAST CANCER FEMALE
     Dosage: 120 MG, Q3W (120 MG CYCLES 1-2 ; 121 MG CYCLES 3-4; 123 MG CYCLE 5; CYCLE 6 WAS UNKNOWN),
     Route: 042
     Dates: start: 20070418, end: 20070418
  13. LISINOPRIL. [Concomitant]
     Active Substance: LISINOPRIL
     Route: 065
  14. TAXOTERE [Suspect]
     Active Substance: DOCETAXEL
     Dosage: (120 MG CYCLES 1-2 ; 121 MG CYCLES 3-4; 123 MG CYCLE 5; CYCLE 6 WAS UNKNOWN),UNK UNK, Q3W
     Route: 042
     Dates: start: 20070801, end: 20070801
  15. VENLAFAXINE [Concomitant]
     Active Substance: VENLAFAXINE HYDROCHLORIDE
  16. PROCHLORPERAZINE MALEATE. [Concomitant]
     Active Substance: PROCHLORPERAZINE MALEATE

REACTIONS (2)
  - Psychological trauma [Unknown]
  - Alopecia [Recovering/Resolving]

NARRATIVE: CASE EVENT DATE: 20080202
